FAERS Safety Report 8287632-8 (Version None)
Quarter: 2012Q2

REPORT INFORMATION
  Report Type: 
  Country: None (occurrence: None)
  Receive Date: 20120416
  Receipt Date: 20120410
  Transmission Date: 20120825
  Serious: Yes (Death)
  Sender: FDA-Public Use
  Company Number: PHHY2012US030965

PATIENT

DRUGS (4)
  1. RADIATION THERAPY [Concomitant]
     Dosage: 2.0 GY, SINGLE DAILY FRACTIONS (MON TO FRI) TO A TOTAL OF AT LEAST DAILY FRACTIONS
  2. EVEROLIMUS [Suspect]
     Indication: GLIOBLASTOMA
     Dosage: 10 MG/ DAILY
     Route: 048
  3. TEMOZOLOMIDE [Concomitant]
     Indication: GLIOBLASTOMA
     Dosage: 75 MG/M2, DAILY
     Route: 048
  4. BEVACIZUMAB [Suspect]
     Indication: GLIOBLASTOMA
     Dosage: 10 MG/KG, EVERY 2 WEEKS (WEEKS 1, 3, 5, 7)
     Route: 042

REACTIONS (1)
  - PULMONARY EMBOLISM [None]
